FAERS Safety Report 18237891 (Version 1)
Quarter: 2020Q3

REPORT INFORMATION
  Report Type: Spontaneous
  Country: US (occurrence: US)
  Receive Date: 20200907
  Receipt Date: 20200907
  Transmission Date: 20201103
  Serious: Yes (Death, Other)
  Sender: FDA-Public Use
  Company Number: US-AMGEN-USASP2020142401

PATIENT

DRUGS (8)
  1. IXAZOMIB [Suspect]
     Active Substance: IXAZOMIB
     Indication: PLASMA CELL MYELOMA
     Dosage: UNK
     Route: 065
  2. DOXORUBICIN [Suspect]
     Active Substance: DOXORUBICIN
     Indication: PLASMA CELL MYELOMA
     Dosage: 10 MG/M2 (DAYS 1 TO 4 OR 1 TO 3 OR 1 TO  2)
     Route: 042
  3. PEGFILGRASTIM [Suspect]
     Active Substance: PEGFILGRASTIM
     Indication: NEUTROPENIA
     Dosage: UNK, ONE TIME DOSE SQ PROVIDED ON DAY 6 OR 7
     Route: 065
  4. CYCLOPHOSPHAMIDE. [Suspect]
     Active Substance: CYCLOPHOSPHAMIDE
     Indication: PLASMA CELL MYELOMA
     Dosage: 350 MG/M2 TO 500 MG/M2 (FOR DAYS 1?4 OR 1?3 FOR 28 DAYS CYCLE)
     Route: 042
  5. FILGRASTIM [Suspect]
     Active Substance: FILGRASTIM
     Indication: NEUTROPENIA
     Dosage: 5?10 MICROGRAM/KG/D ROUNDED TO FLAT DOSE OF 300 OR 600 OR 480 OR 960 MICROGRAM/D SQ DAILY STARTING D
     Route: 065
  6. BORTEZOMIB. [Suspect]
     Active Substance: BORTEZOMIB
     Indication: PLASMA CELL MYELOMA
     Dosage: UNK
     Route: 065
  7. CARFILZOMIB [Suspect]
     Active Substance: CARFILZOMIB
     Indication: PLASMA CELL MYELOMA
     Dosage: 20 MILLIGRAM/SQ. METER ON DAYS 1, 2 OF FIRST CYCLE
     Route: 042
  8. CARFILZOMIB [Suspect]
     Active Substance: CARFILZOMIB
     Dosage: 27 MILLIGRAM/SQ. METER ON DAYS 1, 8, 15, 16 AND ALL SUBSEQUENT DOSES
     Route: 042

REACTIONS (30)
  - Infection [Fatal]
  - Therapy partial responder [Unknown]
  - Atrial fibrillation [Unknown]
  - Bone disorder [Unknown]
  - Soft tissue disorder [Unknown]
  - Ascites [Fatal]
  - Bradycardia [Unknown]
  - Myocardial ischaemia [Unknown]
  - Pulmonary hypertension [Unknown]
  - Deep vein thrombosis [Unknown]
  - Electrocardiogram QT prolonged [Unknown]
  - Haemorrhage [Unknown]
  - Febrile neutropenia [Unknown]
  - Pulmonary embolism [Unknown]
  - Plasmacytoma [Unknown]
  - Embolism venous [Unknown]
  - Atrial tachycardia [Unknown]
  - Dialysis hypotension [Unknown]
  - Plasma cell myeloma [Fatal]
  - Vasculitis [Fatal]
  - Fluid overload [Unknown]
  - Clostridium difficile colitis [Fatal]
  - Neutropenia [Unknown]
  - Cardiac failure [Unknown]
  - Thrombocytopenia [Unknown]
  - Tachyarrhythmia [Unknown]
  - Ejection fraction abnormal [Unknown]
  - Hypercalcaemia [Unknown]
  - Renal impairment [Unknown]
  - Off label use [Unknown]
